FAERS Safety Report 7809393-6 (Version None)
Quarter: 2011Q4

REPORT INFORMATION
  Report Type: 
  Country: None (occurrence: None)
  Receive Date: 20111012
  Receipt Date: 20111006
  Transmission Date: 20120403
  Serious: Yes (Hospitalization)
  Sender: FDA-Public Use
  Company Number: DE-AMGEN-DEUCT2011042851

PATIENT
  Age: 72 Year
  Sex: Male
  Weight: 65 kg

DRUGS (37)
  1. IMERON [Concomitant]
     Route: 042
     Dates: start: 20110809
  2. FLUOROURACIL [Concomitant]
     Indication: COLORECTAL CANCER METASTATIC
     Dosage: 110 UNK, UNK
     Dates: start: 20110621, end: 20110810
  3. NEUPOGEN [Concomitant]
     Indication: LEUKOPENIA
     Dosage: 300 MUG, UNK
     Route: 058
     Dates: start: 20110705, end: 20110708
  4. AMINO ACID INJ [Concomitant]
     Indication: WEIGHT DECREASED
     Dosage: UNK
     Route: 042
     Dates: start: 20110706, end: 20110713
  5. SODIUM CHLORIDE [Concomitant]
     Indication: RENAL FAILURE
     Dosage: 1000 ML, UNK
     Route: 042
     Dates: start: 20110705, end: 20110829
  6. INSULIN GLARGINE [Concomitant]
     Indication: DIABETES MELLITUS
     Dosage: 100 UNK, UNK
     Route: 058
     Dates: start: 19890615
  7. FERROUS SULFATE TAB [Concomitant]
     Indication: ANAEMIA
     Dosage: 40 MG, UNK
     Route: 048
     Dates: start: 20110718
  8. ZOLPIDEM [Concomitant]
     Indication: INSOMNIA
     Dosage: UNK
     Route: 048
     Dates: start: 20110622, end: 20110623
  9. LEUCOVORIN CALCIUM [Concomitant]
     Indication: COLORECTAL CANCER METASTATIC
     Dosage: 110 UNK, UNK
     Dates: start: 20110621, end: 20110810
  10. TAZOBAC [Concomitant]
     Indication: UROSEPSIS
     Dosage: 1 UNK, UNK
     Route: 042
     Dates: start: 20110711, end: 20110717
  11. NOVALGIN [Concomitant]
     Indication: PYREXIA
  12. DIPIDOLOR [Concomitant]
     Indication: PYREXIA
     Dosage: UNK
     Route: 042
     Dates: start: 20110711, end: 20110711
  13. VALSARTAN [Concomitant]
     Indication: HYPERTENSION
     Dosage: 160 MG, UNK
     Route: 048
     Dates: start: 20110615, end: 20110809
  14. OXALIPLATIN [Concomitant]
     Indication: COLORECTAL CANCER METASTATIC
     Dosage: 110 UNK, UNK
     Dates: start: 20110621, end: 20110810
  15. ALLOPURINOL [Concomitant]
     Indication: GOUT
     Dosage: 150 MG, UNK
     Route: 048
     Dates: start: 19890615, end: 20110805
  16. MUCOFALK [Concomitant]
     Indication: CONSTIPATION
     Dosage: 5 G, UNK
     Route: 048
     Dates: start: 20110706, end: 20110714
  17. NOVALGIN [Concomitant]
     Indication: BACK PAIN
     Dosage: UNK
     Route: 048
     Dates: start: 20110705
  18. ENOXAPARIN SODIUM [Concomitant]
     Indication: THROMBOSIS
     Dosage: 0.4 ML, UNK
     Route: 058
     Dates: start: 20110727, end: 20110729
  19. ACETYLCYSTEINE [Concomitant]
     Route: 042
     Dates: start: 20110809, end: 20110809
  20. SALVIATHYMOL [Concomitant]
     Indication: STOMATITIS
     Dosage: 10 ML, UNK
     Route: 050
     Dates: start: 20110621, end: 20110704
  21. FUCHSINE [Concomitant]
     Indication: FINGER DEFORMITY
     Dosage: UNK
     Route: 061
     Dates: start: 20110819, end: 20110819
  22. PREVALIN [Concomitant]
     Indication: LIMB INJURY
     Dosage: UNK
     Route: 061
     Dates: start: 20110819, end: 20110830
  23. TEPILTA [Concomitant]
     Indication: ABDOMINAL PAIN UPPER
     Dosage: UNK
     Route: 048
     Dates: start: 20110706
  24. OLICLINOMEL [Concomitant]
     Indication: WEIGHT DECREASED
     Dosage: UNK
     Route: 042
     Dates: start: 20110713, end: 20110719
  25. DYNEXAN [Concomitant]
     Indication: MUCOSAL INFLAMMATION
     Dosage: UNK
     Route: 061
     Dates: start: 20110714, end: 20110726
  26. PANITUMUMAB [Suspect]
     Indication: COLORECTAL CANCER METASTATIC
     Dosage: 360 MG, UNK
     Dates: start: 20110621
  27. TORSEMIDE [Concomitant]
     Indication: RENAL FAILURE
     Dosage: 5 MG, UNK
     Route: 048
     Dates: start: 20110709, end: 20110709
  28. IMODIUM [Concomitant]
     Indication: DIARRHOEA
     Dosage: 1 UNK, UNK
     Route: 048
     Dates: start: 20110707, end: 20110809
  29. OXAZEPAM [Concomitant]
     Indication: INSOMNIA
     Dosage: UNK
     Route: 048
     Dates: start: 20110718, end: 20110718
  30. HYDROCHLORTHIAZID [Concomitant]
     Indication: HYPERKALAEMIA
     Dosage: 12.5 MG, UNK
     Route: 048
     Dates: start: 20110515, end: 20110706
  31. GRANOCYTE 34 [Concomitant]
     Indication: LEUKOPENIA
     Route: 058
     Dates: start: 20110823, end: 20110826
  32. DEXAMETHASONE [Concomitant]
     Indication: NAUSEA
     Dosage: UNK
     Route: 042
     Dates: start: 20110621
  33. CPS [Concomitant]
     Indication: MUCOSAL INFLAMMATION
     Dosage: 15 G, UNK
     Route: 048
     Dates: start: 20110705, end: 20110705
  34. MAGNESIUM [Concomitant]
     Indication: HYPOMAGNESAEMIA
     Dosage: UNK
     Route: 042
     Dates: start: 20110809, end: 20110809
  35. DOXYCYCLINE [Concomitant]
     Indication: RASH
     Dosage: 100 MG, UNK
     Route: 048
     Dates: start: 20110621
  36. KEVATRIL [Concomitant]
     Indication: NAUSEA
     Dosage: UNK
     Route: 042
     Dates: start: 20110621
  37. VITAMIN B 12 LICHTENSTEIN [Concomitant]
     Indication: POLYNEUROPATHY
     Dosage: 1 UNK, UNK
     Route: 042
     Dates: start: 20110621

REACTIONS (3)
  - RENAL FAILURE [None]
  - LEUKOPENIA [None]
  - PULMONARY EMBOLISM [None]
